FAERS Safety Report 7095706-2 (Version None)
Quarter: 2010Q4

REPORT INFORMATION
  Report Type: 
  Country: None (occurrence: None)
  Receive Date: 20101111
  Receipt Date: 20101029
  Transmission Date: 20110411
  Serious: Yes (Other)
  Sender: FDA-Public Use
  Company Number: PHHY2010US73750

PATIENT
  Sex: Male

DRUGS (2)
  1. GENTEAL (NVO) [Suspect]
  2. REFRESH /00880201/ [Suspect]

REACTIONS (6)
  - DRUG INEFFECTIVE [None]
  - DRY EYE [None]
  - FOREIGN BODY SENSATION IN EYES [None]
  - INTRAOCULAR PRESSURE DECREASED [None]
  - MACULAR DEGENERATION [None]
  - VISION BLURRED [None]
